FAERS Safety Report 23769991 (Version 1)
Quarter: 2024Q2

REPORT INFORMATION
  Report Type: Spontaneous
  Country: KR (occurrence: None)
  Receive Date: 20240422
  Receipt Date: 20240422
  Transmission Date: 20240716
  Serious: Yes (Other)
  Sender: FDA-Public Use
  Company Number: 2024A091681

PATIENT
  Age: 48 Year
  Sex: Female

DRUGS (6)
  1. GEFITINIB [Suspect]
     Active Substance: GEFITINIB
     Indication: Non-small cell lung cancer
     Route: 048
  2. OSIMERTINIB [Suspect]
     Active Substance: OSIMERTINIB
     Indication: Metastases to meninges
     Route: 048
  3. CISPLATIN\PEMETREXED [Concomitant]
     Active Substance: CISPLATIN\PEMETREXED
     Dosage: SECOND-LINE THERAPY
  4. BEVACIZUMAB [Concomitant]
     Active Substance: BEVACIZUMAB
  5. DOCETAXEL [Concomitant]
     Active Substance: DOCETAXEL\DOCETAXEL ANHYDROUS
  6. CARBOPLATIN [Concomitant]
     Active Substance: CARBOPLATIN

REACTIONS (3)
  - Malignant neoplasm progression [Unknown]
  - Metastases to meninges [Unknown]
  - Asthenia [Unknown]
